FAERS Safety Report 4604118-X (Version None)
Quarter: 2005Q1

REPORT INFORMATION
  Report Type: 
  Country: None (occurrence: None)
  Receive Date: 20050309
  Receipt Date: 20050309
  Transmission Date: 20050727
  Serious: Yes (Life-Threatening, Hospitalization, Disabling)
  Sender: FDA-Public Use
  Company Number: None

PATIENT
  Sex: Female
  Weight: 54.8852 kg

DRUGS (1)
  1. VERAPAMIL 180 MG IVAX -ZENITH LABS [Suspect]
     Indication: HYPERTENSION
     Dosage: 180 MG ORAL QD [ONE DOSE]
     Route: 048
     Dates: start: 20050217

REACTIONS (8)
  - CONDITION AGGRAVATED [None]
  - CONFUSIONAL STATE [None]
  - DIALYSIS [None]
  - ECONOMIC PROBLEM [None]
  - HYPERTENSION [None]
  - HYPOTENSION [None]
  - PHARMACEUTICAL PRODUCT COMPLAINT [None]
  - RENAL FAILURE ACUTE [None]
